FAERS Safety Report 6152837-9 (Version None)
Quarter: 2009Q2

REPORT INFORMATION
  Report Type: 
  Country: None (occurrence: None)
  Receive Date: 20090413
  Receipt Date: 20090402
  Transmission Date: 20091009
  Serious: Yes (Other)
  Sender: FDA-Public Use
  Company Number: US-PFIZER INC-2009193197

PATIENT
  Sex: Female
  Weight: 54.431 kg

DRUGS (13)
  1. CELEBREX [Suspect]
     Indication: ARTHRITIS
     Dosage: 200 MG, 2X/DAY
     Route: 048
     Dates: start: 20080901
  2. NEURONTIN [Concomitant]
  3. BACLOFEN [Concomitant]
  4. ZANAFLEX [Concomitant]
  5. OXYBUTYNIN CHLORIDE [Concomitant]
  6. LUNESTA [Concomitant]
  7. TRAZODONE HYDROCHLORIDE [Concomitant]
  8. TEGRETOL [Concomitant]
  9. CYMBALTA [Concomitant]
  10. KLONOPIN [Concomitant]
  11. DOXYCYCLINE HYCLATE [Concomitant]
  12. MORPHINE [Concomitant]
  13. METHADONE HYDROCHLORIDE [Concomitant]

REACTIONS (1)
  - DRUG SCREEN POSITIVE [None]
